FAERS Safety Report 24868162 (Version 3)
Quarter: 2025Q1

REPORT INFORMATION
  Report Type: Spontaneous
  Country: US (occurrence: US)
  Receive Date: 20250121
  Receipt Date: 20250310
  Transmission Date: 20250409
  Serious: Yes (Death, Other)
  Sender: SANOFI AVENTIS
  Company Number: US-SA-2025SA010133

PATIENT
  Age: 96 Year
  Sex: Female

DRUGS (11)
  1. AMBIEN [Suspect]
     Active Substance: ZOLPIDEM TARTRATE
     Dosage: UNK UNK, QD (AT BEDTIME)
     Route: 004
     Dates: start: 2023
  2. METHOCARBAMOL [Suspect]
     Active Substance: METHOCARBAMOL
  3. XANAX [Suspect]
     Active Substance: ALPRAZOLAM
  4. MELATONIN [Suspect]
     Active Substance: MELATONIN
  5. VALIUM [Suspect]
     Active Substance: DIAZEPAM
  6. LUNESTA [Suspect]
     Active Substance: ESZOPICLONE
  7. SONATA [Suspect]
     Active Substance: ZALEPLON
  8. RESTORIL [Suspect]
     Active Substance: TEMAZEPAM
  9. ROZEREM [Suspect]
     Active Substance: RAMELTEON
  10. ATIVAN [Suspect]
     Active Substance: LORAZEPAM
  11. DIPHENHYDRAMINE [Suspect]
     Active Substance: DIPHENHYDRAMINE

REACTIONS (2)
  - Cardiac arrest [Fatal]
  - Product prescribing error [Unknown]

NARRATIVE: CASE EVENT DATE: 20231029
